FAERS Safety Report 6354760-3 (Version None)
Quarter: 2009Q3

REPORT INFORMATION
  Report Type: 
  Country: None (occurrence: None)
  Receive Date: 20090914
  Receipt Date: 20090901
  Transmission Date: 20100115
  Serious: Yes (Hospitalization)
  Sender: FDA-Public Use
  Company Number: US-ELI_LILLY_AND_COMPANY-US200909000276

PATIENT
  Sex: Female
  Weight: 94.785 kg

DRUGS (20)
  1. BYETTA [Suspect]
     Indication: TYPE 2 DIABETES MELLITUS
     Dosage: 5 UG, 2/D
     Route: 058
     Dates: start: 20080101, end: 20080101
  2. BYETTA [Suspect]
     Dosage: 10 UG, 2/D
     Route: 058
     Dates: start: 20080101, end: 20090723
  3. BYETTA [Suspect]
     Dosage: 10 UG, 2/D
     Route: 058
     Dates: start: 20090830
  4. GLIPIZIDE [Concomitant]
     Indication: TYPE 2 DIABETES MELLITUS
     Dosage: 10 MG, DAILY (1/D)
  5. METFORMIN HCL [Concomitant]
     Indication: TYPE 2 DIABETES MELLITUS
     Dosage: 1000 MG, 2/D
  6. BUMEX [Concomitant]
     Indication: FLUID RETENTION
     Dosage: 0.5 MG, UNK
  7. LIPITOR [Concomitant]
     Indication: BLOOD CHOLESTEROL INCREASED
     Dosage: 10 MG, UNK
  8. NORVASC [Concomitant]
     Indication: BLOOD PRESSURE INCREASED
     Dosage: 10 MG, DAILY (1/D)
  9. METOPROLOL TARTRATE [Concomitant]
     Indication: BLOOD PRESSURE INCREASED
     Dosage: 50 MG, UNK
  10. LISINOPRIL [Concomitant]
     Indication: BLOOD PRESSURE INCREASED
     Dosage: 20 MG, UNK
  11. RANITIDINE [Concomitant]
     Indication: GASTROOESOPHAGEAL REFLUX DISEASE
     Dosage: 150 MG, AS NEEDED
  12. BUPROPION HCL [Concomitant]
     Indication: DEPRESSION
     Dosage: 150 MG, UNK
  13. CITALOPRAM HYDROBROMIDE [Concomitant]
     Indication: DEPRESSION
     Dosage: 30 MG, UNK
  14. NORTRIPTYLINE HCL [Concomitant]
     Dosage: 75 MG, EACH EVENING
  15. FLONASE [Concomitant]
     Indication: MULTIPLE ALLERGIES
  16. VITAMIN B6 [Concomitant]
  17. VITAMIN B-12 [Concomitant]
  18. FISH OIL [Concomitant]
  19. CALCIUM [Concomitant]
  20. MULTI-VITAMIN [Concomitant]

REACTIONS (10)
  - ARTHRITIS [None]
  - BLOOD GLUCOSE INCREASED [None]
  - DRUG DOSE OMISSION [None]
  - EXOSTOSIS [None]
  - GAIT DISTURBANCE [None]
  - HYPOAESTHESIA [None]
  - MOBILITY DECREASED [None]
  - POST PROCEDURAL HAEMATOMA [None]
  - SPINAL CORD COMPRESSION [None]
  - SPINAL CORD DISORDER [None]
